FAERS Safety Report 8485318-8 (Version None)
Quarter: 2012Q3

REPORT INFORMATION
  Report Type: 
  Country: None (occurrence: None)
  Receive Date: 20120703
  Receipt Date: 20120628
  Transmission Date: 20120928
  Serious: No
  Sender: FDA-Public Use
  Company Number: US-PFIZER INC-2012145064

PATIENT
  Sex: Male
  Weight: 132 kg

DRUGS (9)
  1. DIOVAN [Concomitant]
     Indication: CARDIAC DISORDER
     Dosage: 80 MG, DAILY
  2. NEURONTIN [Suspect]
     Dosage: 1800 MG, UNK
     Route: 048
     Dates: start: 20120101, end: 20120101
  3. LANTUS [Concomitant]
     Indication: DIABETES MELLITUS
     Dosage: 75 IU, DAILY
  4. NEURONTIN [Suspect]
     Indication: DIABETIC NEUROPATHY
     Dosage: 100 MG, 3X/DAY
     Route: 048
     Dates: start: 20120101, end: 20120101
  5. NEURONTIN [Suspect]
     Dosage: 8000 MG, UNK
     Route: 048
     Dates: start: 20120101, end: 20120614
  6. LIPITOR [Concomitant]
     Indication: BLOOD CHOLESTEROL INCREASED
     Dosage: 20 MG, DAILY
  7. NOVOLOG [Concomitant]
     Indication: DIABETES MELLITUS
     Dosage: 15 IU, 4X/DAY
  8. METFORMIN [Concomitant]
     Indication: DIABETES MELLITUS
     Dosage: 1000 MG, 2X/DAY
  9. TRADJENTA [Concomitant]
     Indication: DIABETES MELLITUS
     Dosage: 5 MG, DAILY

REACTIONS (3)
  - PAIN IN EXTREMITY [None]
  - INCORRECT DOSE ADMINISTERED [None]
  - DRUG INEFFECTIVE [None]
